FAERS Safety Report 5563091-0 (Version None)
Quarter: 2007Q4

REPORT INFORMATION
  Report Type: 
  Country: None (occurrence: None)
  Receive Date: 20071217
  Receipt Date: 20071214
  Transmission Date: 20080405
  Serious: Yes (Hospitalization)
  Sender: FDA-Public Use
  Company Number: A0699041A

PATIENT
  Sex: Female

DRUGS (4)
  1. LANOXIN [Suspect]
     Indication: DRUG USE FOR UNKNOWN INDICATION
     Dosage: 2.5MG PER DAY
     Route: 048
  2. BENICAR [Concomitant]
  3. LOPRESSOR [Concomitant]
  4. NORVASC [Concomitant]

REACTIONS (2)
  - DIARRHOEA [None]
  - DRUG TOXICITY [None]
